FAERS Safety Report 4964766-4 (Version None)
Quarter: 2006Q2

REPORT INFORMATION
  Report Type: 
  Country: None (occurrence: None)
  Receive Date: 20060406
  Receipt Date: 20060329
  Transmission Date: 20061013
  Serious: Yes (Disabling, Other)
  Sender: FDA-Public Use
  Company Number: CA-AVENTIS-200613262GDDC

PATIENT
  Age: 52 Year
  Sex: Female

DRUGS (5)
  1. LANTUS [Suspect]
     Indication: DIABETES MELLITUS
     Dosage: DOSE UNIT: UNITS
     Route: 058
     Dates: start: 20060201
  2. AVALIDE [Concomitant]
     Dosage: DOSE: UNK
     Route: 048
  3. TIAZAC [Concomitant]
     Dosage: DOSE: UNK
     Route: 048
  4. ASAPHEN [Concomitant]
     Dosage: DOSE: UNK
     Route: 048
  5. HUMALOG [Concomitant]
     Indication: DIABETES MELLITUS
     Dosage: DOSE: UNK
     Route: 058

REACTIONS (4)
  - EYE HAEMORRHAGE [None]
  - HYPERGLYCAEMIA [None]
  - HYPOGLYCAEMIA [None]
  - OEDEMA PERIPHERAL [None]
